FAERS Safety Report 18839457 (Version 1)
Quarter: 2021Q1

REPORT INFORMATION
  Report Type: Report from Study
  Country: US (occurrence: US)
  Receive Date: 20210203
  Receipt Date: 20210203
  Transmission Date: 20210419
  Serious: No
  Sender: FDA-Public Use
  Company Number: US-EXELIXIS-CABO-20033659

PATIENT
  Age: 65 Year
  Sex: Male

DRUGS (1)
  1. CABOMETYX [Suspect]
     Active Substance: CABOZANTINIB S-MALATE
     Indication: RENAL CANCER
     Dosage: 60 MG, QD
     Dates: start: 20200911

REACTIONS (10)
  - Productive cough [Not Recovered/Not Resolved]
  - Blood sodium decreased [Not Recovered/Not Resolved]
  - Fatigue [Recovering/Resolving]
  - Nausea [Not Recovered/Not Resolved]
  - Weight decreased [Not Recovered/Not Resolved]
  - Blood pressure increased [Not Recovered/Not Resolved]
  - Blood electrolytes decreased [Not Recovered/Not Resolved]
  - Diarrhoea [Not Recovered/Not Resolved]
  - Decreased appetite [Not Recovered/Not Resolved]
  - Pharyngeal swelling [Not Recovered/Not Resolved]

NARRATIVE: CASE EVENT DATE: 20201005
